FAERS Safety Report 12565155 (Version 2)
Quarter: 2018Q4

REPORT INFORMATION
  Report Type: Spontaneous
  Country: US (occurrence: US)
  Receive Date: 20160718
  Receipt Date: 20181008
  Transmission Date: 20190204
  Serious: No
  Sender: FDA-Public Use
  Company Number: US-PFIZER INC-2016345795

PATIENT
  Age: 73 Year
  Sex: Female
  Weight: 73 kg

DRUGS (12)
  1. LYRICA [Suspect]
     Active Substance: PREGABALIN
     Indication: HYPOAESTHESIA
     Dosage: 75 MG, 1X/DAY
     Route: 048
     Dates: start: 20160623
  2. LYRICA [Suspect]
     Active Substance: PREGABALIN
     Indication: PAIN IN EXTREMITY
  3. ALLOPURINOL. [Concomitant]
     Active Substance: ALLOPURINOL
     Indication: GOUT
     Dosage: 300 MG, 1X/DAY
     Route: 048
  4. LYRICA [Suspect]
     Active Substance: PREGABALIN
     Indication: PAIN
  5. POTASSIUM BICARBONATE/CITRIC ACID [Concomitant]
     Dosage: 20 MG, UNK
  6. LYRICA [Suspect]
     Active Substance: PREGABALIN
     Indication: BURNING SENSATION
     Dosage: 100 MG, 3X/DAY
  7. MAGNESIUM OXIDE. [Concomitant]
     Active Substance: MAGNESIUM OXIDE
     Dosage: 400 MG, 1X/DAY
     Route: 048
  8. TRANDOLAPRIL. [Concomitant]
     Active Substance: TRANDOLAPRIL
     Indication: BLOOD PRESSURE ABNORMAL
     Dosage: 2 MG, 1X/DAY
     Route: 048
  9. ZOCOR [Concomitant]
     Active Substance: SIMVASTATIN
     Indication: BLOOD CHOLESTEROL ABNORMAL
     Dosage: 80 MG, 1X/DAY
     Route: 048
  10. ASPIRIN. [Concomitant]
     Active Substance: ASPIRIN
     Dosage: 81 MG, 1X/DAY
     Route: 048
  11. HYDROCHLOROTHIAZIDE. [Concomitant]
     Active Substance: HYDROCHLOROTHIAZIDE
     Indication: FLUID RETENTION
     Dosage: 25 MG, 1X/DAY
     Route: 048
  12. LYRICA [Suspect]
     Active Substance: PREGABALIN
     Indication: BACK PAIN

REACTIONS (2)
  - Fatigue [Not Recovered/Not Resolved]
  - Dizziness [Not Recovered/Not Resolved]

NARRATIVE: CASE EVENT DATE: 20160709
